FAERS Safety Report 5766580-9 (Version None)
Quarter: 2008Q2

REPORT INFORMATION
  Report Type: 
  Country: None (occurrence: None)
  Receive Date: 20080612
  Receipt Date: 20080606
  Transmission Date: 20081010
  Serious: Yes (Hospitalization, Other)
  Sender: FDA-Public Use
  Company Number: US-BAYER-US-2007-034376

PATIENT
  Age: 37 Year
  Sex: Female
  Weight: 61 kg

DRUGS (1)
  1. MIRENA [Suspect]
     Indication: CONTRACEPTION
     Route: 015
     Dates: start: 20030101, end: 20070928

REACTIONS (2)
  - PREGNANCY WITH CONTRACEPTIVE DEVICE [None]
  - UTERINE RUPTURE [None]
